FAERS Safety Report 7399136-5 (Version None)
Quarter: 2011Q1

REPORT INFORMATION
  Report Type: 
  Country: None (occurrence: None)
  Receive Date: 20110301
  Receipt Date: 20100309
  Transmission Date: 20110831
  Serious: Yes (Other)
  Sender: FDA-Public Use
  Company Number: RB-04307-2010

PATIENT
  Sex: Female

DRUGS (24)
  1. SUBOXONE [Suspect]
     Indication: DRUG DEPENDENCE
     Dosage: 2 MG QID TRANSPLACENTAL, 4 MG TID TRANSPLACENTAL, 8 MG BID TRANSPLACENTAL
     Route: 064
     Dates: start: 20080814, end: 20080818
  2. SUBOXONE [Suspect]
     Indication: DRUG DEPENDENCE
     Dosage: 2 MG QID TRANSPLACENTAL, 4 MG TID TRANSPLACENTAL, 8 MG BID TRANSPLACENTAL
     Route: 064
     Dates: start: 20080819, end: 20080901
  3. SUBOXONE [Suspect]
     Indication: DRUG DEPENDENCE
     Dosage: 2 MG QID TRANSPLACENTAL, 4 MG TID TRANSPLACENTAL, 8 MG BID TRANSPLACENTAL
     Route: 064
     Dates: start: 20080902, end: 20080908
  4. ALBUTEROL [Concomitant]
  5. VITAMIN B6 [Concomitant]
  6. UNISOM [Concomitant]
  7. COLACE [Concomitant]
  8. LEVLITE [Concomitant]
  9. LEXAPRO [Concomitant]
  10. ADVAIR DISKUS 100/50 [Concomitant]
  11. PROAIR HFA [Concomitant]
  12. SUBUTEX [Suspect]
     Indication: DRUG DEPENDENCE
     Dosage: 8 MG BID TRANSPLACENTAL
     Route: 064
     Dates: start: 20080909, end: 20090119
  13. SUBUTEX [Suspect]
     Indication: DRUG DEPENDENCE
     Dosage: 8 MG BID TRANSPLACENTAL
     Route: 064
     Dates: start: 20090120, end: 20090319
  14. SUBUTEX [Suspect]
     Indication: DRUG DEPENDENCE
     Dosage: 8 MG BID TRANSPLACENTAL
     Route: 064
     Dates: start: 20090320
  15. AMOXIL [Concomitant]
  16. NICODERM CQ [Concomitant]
  17. METAMUCIL-2 [Concomitant]
  18. FLONASE [Concomitant]
  19. CAMPRAL [Concomitant]
  20. METHADOSE [Suspect]
     Indication: DRUG DEPENDENCE
     Dosage: 40 MG TRANSPLACENTAL, 210 MG TRANSPLACENTAL, 180 MG TRANSPLACENTAL
     Route: 064
     Dates: start: 20090120, end: 20090319
  21. METHADOSE [Suspect]
     Indication: DRUG DEPENDENCE
     Dosage: 40 MG TRANSPLACENTAL, 210 MG TRANSPLACENTAL, 180 MG TRANSPLACENTAL
     Route: 064
     Dates: start: 20090320
  22. METHADOSE [Suspect]
     Indication: DRUG DEPENDENCE
     Dosage: 40 MG TRANSPLACENTAL, 210 MG TRANSPLACENTAL, 180 MG TRANSPLACENTAL
     Route: 064
     Dates: start: 20081114, end: 20090119
  23. LAMICTAL [Concomitant]
  24. AMOXICILLIN [Concomitant]

REACTIONS (3)
  - DRUG WITHDRAWAL SYNDROME NEONATAL [None]
  - DRUG EXPOSURE DURING PREGNANCY [None]
  - DRUG WITHDRAWAL SYNDROME [None]
